FAERS Safety Report 10216099 (Version 1)
Quarter: 2014Q2

REPORT INFORMATION
  Report Type: Spontaneous
  Country: US (occurrence: None)
  Receive Date: 20140602
  Receipt Date: 20140602
  Transmission Date: 20141212
  Serious: Yes (Hospitalization)
  Sender: FDA-Public Use
  Company Number: CC 2014-258

PATIENT
  Age: 67 Year
  Sex: Male
  Weight: 61.69 kg

DRUGS (3)
  1. QUANTUM CORAL CALCIUM PLUS - QUANTUM NUTRITION LABS [Suspect]
     Indication: MINERAL SUPPLEMENTATION
     Dosage: 2 CAPSULES ORALLY. TWO TIMES IN OCT. 2013
     Route: 048
     Dates: start: 201310
  2. MULTIVITAMINS [Concomitant]
  3. FISH OIL [Concomitant]

REACTIONS (10)
  - Malaise [None]
  - Dizziness [None]
  - Nausea [None]
  - Vomiting [None]
  - Middle insomnia [None]
  - Malaise [None]
  - Feeling jittery [None]
  - Nervousness [None]
  - Thyroid disorder [None]
  - Hypertension [None]
